FAERS Safety Report 17117523 (Version 1)
Quarter: 2019Q4

REPORT INFORMATION
  Report Type: Spontaneous
  Country: FR (occurrence: FR)
  Receive Date: 20191205
  Receipt Date: 20191205
  Transmission Date: 20200122
  Serious: Yes (Life-Threatening)
  Sender: FDA-Public Use
  Company Number: FR-MYLANLABS-2019M1119205

PATIENT
  Age: 13 Year
  Sex: Female
  Weight: 79 kg

DRUGS (1)
  1. VANCOMYCIN MYLAN [Suspect]
     Active Substance: VANCOMYCIN
     Indication: LUNG DISORDER
     Dosage: INCONNUE; DOSE R?SIDUELLE : 52.6 MG/L
     Route: 041
     Dates: start: 20190622, end: 20190622

REACTIONS (6)
  - Anuria [Recovered/Resolved]
  - Acute kidney injury [Recovered/Resolved]
  - Incorrect product administration duration [Recovered/Resolved]
  - Overdose [Recovered/Resolved]
  - Acute pulmonary oedema [Recovered/Resolved]
  - Product administration error [Recovered/Resolved]

NARRATIVE: CASE EVENT DATE: 20190622
